FAERS Safety Report 20134309 (Version 1)
Quarter: 2021Q4

REPORT INFORMATION
  Report Type: Spontaneous
  Country: FR (occurrence: FR)
  Receive Date: 20211201
  Receipt Date: 20211201
  Transmission Date: 20220304
  Serious: Yes (Hospitalization)
  Sender: FDA-Public Use
  Company Number: FR-NOVARTISPH-NVSC2021FR268962

PATIENT
  Age: 56 Year
  Sex: Male

DRUGS (2)
  1. PREDNISOLONE [Suspect]
     Active Substance: PREDNISOLONE
     Indication: Product used for unknown indication
     Dosage: UNK (VARIABLE DOSE)
     Route: 065
     Dates: start: 20200618, end: 202009
  2. PREDNISOLONE [Suspect]
     Active Substance: PREDNISOLONE
     Dosage: 40 MG
     Route: 048
     Dates: start: 20211014

REACTIONS (10)
  - Epstein-Barr virus test positive [Unknown]
  - Dehydration [Unknown]
  - Colitis ulcerative [Unknown]
  - Pyrexia [Recovered/Resolved]
  - Acute kidney injury [Unknown]
  - Abdominal lymphadenopathy [Unknown]
  - Vomiting [Unknown]
  - Hyperthermia [Unknown]
  - Nausea [Unknown]
  - Decreased appetite [Unknown]

NARRATIVE: CASE EVENT DATE: 20200905
